FAERS Safety Report 16061763 (Version 1)
Quarter: 2019Q2

REPORT INFORMATION
  Report Type: Spontaneous
  Country: US (occurrence: US)
  Receive Date: 20190312
  Receipt Date: 20190312
  Transmission Date: 20190711
  Serious: Yes (Death)
  Sender: FDA-Public Use
  Company Number: None

PATIENT
  Age: 75 Year
  Sex: Male

DRUGS (26)
  1. ATORVASTATIN [Concomitant]
     Active Substance: ATORVASTATIN
  2. FINASTERIDE. [Concomitant]
     Active Substance: FINASTERIDE
  3. METOROL [Concomitant]
  4. FAMOTIDINE. [Concomitant]
     Active Substance: FAMOTIDINE
  5. ASPIRIN. [Concomitant]
     Active Substance: ASPIRIN
  6. TYLENOL [Concomitant]
     Active Substance: ACETAMINOPHEN
  7. LORAZEPAM. [Concomitant]
     Active Substance: LORAZEPAM
  8. MULTIVITAMIN [Concomitant]
     Active Substance: VITAMINS
  9. VITAMIN B6 [Concomitant]
     Active Substance: PYRIDOXINE HYDROCHLORIDE
  10. ONDANSETRON [Concomitant]
     Active Substance: ONDANSETRON
  11. KONDREMUL [Concomitant]
     Active Substance: MINERAL OIL
  12. SYNTHROID [Concomitant]
     Active Substance: LEVOTHYROXINE SODIUM
  13. FISH OIL [Concomitant]
     Active Substance: FISH OIL
  14. FLOMAX [Concomitant]
     Active Substance: TAMSULOSIN HYDROCHLORIDE
  15. BUMETANIDE. [Concomitant]
     Active Substance: BUMETANIDE
  16. FEXOFENADINE [Concomitant]
     Active Substance: FEXOFENADINE\FEXOFENADINE HYDROCHLORIDE
  17. RANEXA [Concomitant]
     Active Substance: RANOLAZINE
  18. CLOPIDOGREL [Concomitant]
     Active Substance: CLOPIDOGREL BISULFATE
  19. FLUMADINE [Concomitant]
     Active Substance: RIMANTADINE HYDROCHLORIDE
  20. A-HYDROCORT [Concomitant]
     Active Substance: HYDROCORTISONE SODIUM SUCCINATE
  21. TICE BCG [Suspect]
     Active Substance: BACILLUS CALMETTE-GUERIN SUBSTRAIN TICE LIVE ANTIGEN
     Indication: NEOPLASM MALIGNANT
     Dosage: ?          OTHER FREQUENCY:ONCE WKLY AS DIREC;OTHER ROUTE:INJECTION?
     Dates: start: 20151210
  22. NITROGLYCER [Concomitant]
  23. AMLODIPINE [Concomitant]
     Active Substance: AMLODIPINE BESYLATE
  24. MORPHINE [Concomitant]
     Active Substance: MORPHINE
  25. HYDRALAZINE [Concomitant]
     Active Substance: HYDRALAZINE HYDROCHLORIDE
  26. RESTASIS [Concomitant]
     Active Substance: CYCLOSPORINE

REACTIONS (1)
  - Death [None]

NARRATIVE: CASE EVENT DATE: 20190114
